FAERS Safety Report 9690399 (Version 2)
Quarter: 2013Q4

REPORT INFORMATION
  Report Type: Spontaneous
  Country: IT (occurrence: IT)
  Receive Date: 20131115
  Receipt Date: 20131230
  Transmission Date: 20140711
  Serious: Yes (Hospitalization)
  Sender: FDA-Public Use
  Company Number: IT-SA-2013SA114142

PATIENT
  Age: 87 Year
  Sex: Female

DRUGS (2)
  1. CLEXANE T [Suspect]
     Indication: HIP FRACTURE
     Route: 058
     Dates: start: 20130810, end: 20131003
  2. METFORMIN HYDROCHLORIDE [Concomitant]
     Dosage: STRENGTH: 850 MG

REACTIONS (2)
  - Anaemia [Recovering/Resolving]
  - Electrolyte imbalance [Recovering/Resolving]
